FAERS Safety Report 25943084 (Version 1)
Quarter: 2025Q4

REPORT INFORMATION
  Report Type: Spontaneous
  Country: US (occurrence: None)
  Receive Date: 20251020
  Receipt Date: 20251020
  Transmission Date: 20260118
  Serious: Yes (Hospitalization)
  Sender: FDA-CTU
  Company Number: None

PATIENT
  Age: 64 Year
  Sex: Female
  Weight: 59.85 kg

DRUGS (5)
  1. DARZALEX FASPRO [Suspect]
     Active Substance: DARATUMUMAB\HYALURONIDASE-FIHJ
     Indication: Plasma cell myeloma
     Dosage: OTHER QUANTITY : 1 INJECTION(S);?OTHER FREQUENCY : MONTHLY;?
     Route: 058
     Dates: start: 20251013, end: 20251013
  2. LINZESS [Concomitant]
     Active Substance: LINACLOTIDE
  3. ACYCLOVIR [Concomitant]
     Active Substance: ACYCLOVIR
  4. Cal Mag-D-K [Concomitant]
  5. ASPIRIN [Concomitant]
     Active Substance: ASPIRIN

REACTIONS (10)
  - Hypoaesthesia [None]
  - Chills [None]
  - Tremor [None]
  - Tonic clonic movements [None]
  - Pyrexia [None]
  - Vomiting [None]
  - Dyspnoea [None]
  - Asthenia [None]
  - Dizziness [None]
  - Heart rate increased [None]

NARRATIVE: CASE EVENT DATE: 20251013
